FAERS Safety Report 6887656-9 (Version None)
Quarter: 2010Q3

REPORT INFORMATION
  Report Type: 
  Country: None (occurrence: None)
  Receive Date: 20100730
  Receipt Date: 20100728
  Transmission Date: 20110219
  Serious: Yes (Hospitalization)
  Sender: FDA-Public Use
  Company Number: A0872461A

PATIENT
  Age: 39 Year
  Sex: Female

DRUGS (7)
  1. ALLI [Suspect]
     Route: 048
  2. PLAQUENIL [Concomitant]
     Dosage: 200MG TWICE PER DAY
  3. PREDNISONE [Concomitant]
     Dosage: 10MG PER DAY
  4. LYRICA [Concomitant]
     Dosage: 150MG TWICE PER DAY
  5. DILTIAZEM [Concomitant]
     Indication: MIGRAINE
     Dosage: 90MG TWICE PER DAY
  6. PROZAC [Concomitant]
     Dosage: 20MG PER DAY
     Route: 048
  7. DETROL LA [Concomitant]
     Dosage: 4MG PER DAY
     Route: 048

REACTIONS (8)
  - ABDOMINAL PAIN [None]
  - CHOLECYSTECTOMY [None]
  - CHOLELITHIASIS [None]
  - GALLBLADDER DISORDER [None]
  - MALAISE [None]
  - NAUSEA [None]
  - PAIN [None]
  - VOMITING [None]
